FAERS Safety Report 7104810-1 (Version None)
Quarter: 2010Q4

REPORT INFORMATION
  Report Type: 
  Country: None (occurrence: None)
  Receive Date: 20101116
  Receipt Date: 20101108
  Transmission Date: 20110411
  Serious: Yes (Hospitalization)
  Sender: FDA-Public Use
  Company Number: US-US-EMD SERONO, INC.-232797J10USA

PATIENT
  Sex: Female
  Weight: 54 kg

DRUGS (3)
  1. REBIF [Suspect]
     Indication: MULTIPLE SCLEROSIS
     Route: 058
     Dates: start: 20100201
  2. CLONAZAPAM [Concomitant]
     Indication: INSOMNIA
     Dates: start: 20050101
  3. COZAAR [Concomitant]
     Indication: HYPERTENSION

REACTIONS (5)
  - GASTROINTESTINAL INJURY [None]
  - LIVER INJURY [None]
  - MUSCLE STRAIN [None]
  - PANCREATIC INJURY [None]
  - ROAD TRAFFIC ACCIDENT [None]
